FAERS Safety Report 4617727-9 (Version None)
Quarter: 2005Q1

REPORT INFORMATION
  Report Type: 
  Country: None (occurrence: None)
  Receive Date: 20050324
  Receipt Date: 20050315
  Transmission Date: 20050727
  Serious: Yes (Other)
  Sender: FDA-Public Use
  Company Number: GB-ROCHE-398898

PATIENT

DRUGS (1)
  1. ROACCUTANE [Suspect]
     Indication: ACNE
     Route: 065

REACTIONS (1)
  - COMPLETED SUICIDE [None]
